FAERS Safety Report 25156063 (Version 5)
Quarter: 2025Q3

REPORT INFORMATION
  Report Type: Report from Study
  Country: US (occurrence: US)
  Receive Date: 20250403
  Receipt Date: 20250814
  Transmission Date: 20251021
  Serious: Yes (Other)
  Sender: NOVARTIS
  Company Number: US-002147023-NVSC2024US240848

PATIENT
  Sex: Female

DRUGS (1)
  1. KESIMPTA [Suspect]
     Active Substance: OFATUMUMAB
     Indication: Product used for unknown indication
     Route: 065

REACTIONS (27)
  - Ovarian neoplasm [Unknown]
  - Fatigue [Unknown]
  - Headache [Unknown]
  - Pyrexia [Unknown]
  - Myalgia [Unknown]
  - Contusion [Unknown]
  - Haemorrhage [Unknown]
  - Feeling abnormal [Unknown]
  - Crying [Unknown]
  - Anxiety [Unknown]
  - Nervousness [Unknown]
  - Weight increased [Unknown]
  - Stress [Unknown]
  - Asthenia [Unknown]
  - Therapeutic response shortened [Unknown]
  - Tremor [Unknown]
  - Memory impairment [Unknown]
  - Impaired healing [Recovering/Resolving]
  - Somnolence [Unknown]
  - Pain in extremity [Unknown]
  - Condition aggravated [Recovered/Resolved]
  - Hyperaesthesia teeth [Unknown]
  - Gingival pain [Unknown]
  - Toothache [Unknown]
  - Injection site bruising [Unknown]
  - Ephelides [Unknown]
  - Skin atrophy [Unknown]
